FAERS Safety Report 17211707 (Version 4)
Quarter: 2020Q1

REPORT INFORMATION
  Report Type: Spontaneous
  Country: US (occurrence: US)
  Receive Date: 20191229
  Receipt Date: 20200131
  Transmission Date: 20200409
  Serious: Yes (Disabling)
  Sender: FDA-Public Use
  Company Number: US-AMGEN INC.-USASP2019214749

PATIENT
  Age: 20 Year
  Sex: Female
  Weight: 69.84 kg

DRUGS (2)
  1. BOTOX [Concomitant]
     Active Substance: ONABOTULINUMTOXINA
     Indication: MIGRAINE
     Dosage: 175 UNITS, 12 WEEKS,
     Dates: start: 20161128
  2. AIMOVIG [Suspect]
     Active Substance: ERENUMAB-AOOE
     Indication: MIGRAINE PROPHYLAXIS
     Dosage: 140 MILLIGRAM
     Route: 065
     Dates: start: 201808

REACTIONS (2)
  - Cardiac ablation [Unknown]
  - Migraine [Unknown]

NARRATIVE: CASE EVENT DATE: 201910
